FAERS Safety Report 5281067-8 (Version None)
Quarter: 2007Q1

REPORT INFORMATION
  Report Type: 
  Country: None (occurrence: None)
  Receive Date: 20061229
  Receipt Date: 20061005
  Transmission Date: 20070707
  Serious: Yes (Other)
  Sender: FDA-Public Use
  Company Number: 2006UW19416

PATIENT
  Age: 86 Year
  Sex: Female
  Weight: 77.11 kg

DRUGS (2)
  1. CRESTOR [Suspect]
     Indication: BLOOD CHOLESTEROL INCREASED
     Dates: start: 20061003
  2. THYROID TAB [Concomitant]

REACTIONS (3)
  - HEADACHE [None]
  - PYREXIA [None]
  - VOMITING [None]
